FAERS Safety Report 5635955-0 (Version None)
Quarter: 2008Q1

REPORT INFORMATION
  Report Type: 
  Country: None (occurrence: None)
  Receive Date: 20080224
  Receipt Date: 20080212
  Transmission Date: 20080703
  Serious: Yes (Hospitalization, Other)
  Sender: FDA-Public Use
  Company Number: PHEH2006US01243

PATIENT
  Age: 65 Year
  Sex: Female
  Weight: 67.12 kg

DRUGS (14)
  1. AREDIA [Suspect]
     Dosage: UNK,UNK
     Route: 042
  2. ZOMETA [Suspect]
  3. K-DUR 10 [Concomitant]
  4. COUMADIN [Concomitant]
  5. LASIX [Concomitant]
  6. AMBIEN [Concomitant]
  7. SPIRONOLACTONE [Concomitant]
  8. PAXIL [Concomitant]
     Indication: DEPRESSION
  9. LANOXIN [Concomitant]
  10. LOPRESSOR [Concomitant]
  11. METOPROLOL TARTRATE [Concomitant]
  12. ZESTRIL [Concomitant]
  13. HYTRIN [Concomitant]
  14. SYNTHROID [Concomitant]

REACTIONS (37)
  - AORTIC STENOSIS [None]
  - ARTHRITIS [None]
  - ATELECTASIS [None]
  - BACTERIA TISSUE SPECIMEN IDENTIFIED [None]
  - BIOPSY BONE ABNORMAL [None]
  - BIOPSY MUCOSA ABNORMAL [None]
  - BONE DENSITY DECREASED [None]
  - BRONCHOALVEOLAR LAVAGE [None]
  - CEREBROVASCULAR ACCIDENT [None]
  - CHRONIC OBSTRUCTIVE PULMONARY DISEASE [None]
  - COLONOSCOPY ABNORMAL [None]
  - COMPUTERISED TOMOGRAM ABNORMAL [None]
  - CYST [None]
  - DEPRESSION [None]
  - ENDOTRACHEAL INTUBATION [None]
  - FALL [None]
  - FIBROSIS [None]
  - FRACTURE NONUNION [None]
  - HYPERTENSION [None]
  - INFLAMMATION [None]
  - INTESTINAL MASS [None]
  - INTESTINAL ULCER [None]
  - LUNG INFILTRATION [None]
  - NON-SMALL CELL LUNG CANCER [None]
  - ORAL NEOPLASM BENIGN [None]
  - OSTEOMYELITIS [None]
  - OSTEONECROSIS [None]
  - OSTEOPENIA [None]
  - PNEUMONIA [None]
  - POSITRON EMISSION TOMOGRAM ABNORMAL [None]
  - PULMONARY MASS [None]
  - RENAL FAILURE [None]
  - RESPIRATORY FAILURE [None]
  - RIB FRACTURE [None]
  - SCAN ABNORMAL [None]
  - WEIGHT DECREASED [None]
  - X-RAY ABNORMAL [None]
